FAERS Safety Report 23937848 (Version 6)
Quarter: 2025Q1

REPORT INFORMATION
  Report Type: Spontaneous
  Country: US (occurrence: US)
  Receive Date: 20240604
  Receipt Date: 20250113
  Transmission Date: 20250409
  Serious: No
  Sender: PFIZER
  Company Number: US-PFIZER INC-202400180514

PATIENT
  Age: 11 Week
  Sex: Female

DRUGS (2)
  1. SOMATROPIN [Suspect]
     Active Substance: SOMATROPIN
     Indication: Marfan^s syndrome
     Dates: start: 20240328
  2. SOMATROPIN [Suspect]
     Active Substance: SOMATROPIN

REACTIONS (4)
  - Device occlusion [Unknown]
  - Device delivery system issue [Unknown]
  - Device mechanical issue [Unknown]
  - Off label use [Unknown]
